FAERS Safety Report 10369004 (Version 1)
Quarter: 2014Q1

REPORT INFORMATION
  Report Type: Spontaneous
  Country: US (occurrence: None)
  Receive Date: 20140306
  Receipt Date: 20140306
  Transmission Date: 20141002
  Serious: Yes (Hospitalization)
  Sender: FDA-Public Use
  Company Number: 163-21880-13023024

PATIENT
  Age: 75 Year
  Sex: Female

DRUGS (9)
  1. REVLIMID (LENALIDOMIDE) (5 MILLIGRAM, CAPSULES) [Suspect]
     Indication: MYELODYSPLASTIC SYNDROME
     Dosage: 5 MG, 28 IN 28 D, PO
     Route: 048
     Dates: start: 20130125
  2. ACIPHEX (RABEPRAZOLE SODIUM) (UNKNOWN) [Concomitant]
  3. AMBIEN (ZOLPIDEM TARTRATE) (UNKNOWN) [Concomitant]
  4. BENADRYL ALLERGY (BENADRYL ALLERGY) (UNKNOWN) [Concomitant]
  5. CALCIUM 600 (UNKNOWN) [Concomitant]
  6. CARVEDILOL (CARVEDILOL) (UNKNOWN) [Concomitant]
  7. COUMADIN (WARFARIN SODIUM) (UNKNOWN) [Concomitant]
  8. LIPITOR (ATORVASTATIN) (UNKNOWN) [Concomitant]
  9. PRANDIN (UNKNOWN) [Concomitant]

REACTIONS (2)
  - Pneumonia [None]
  - Thrombosis [None]
